FAERS Safety Report 24221386 (Version 1)
Quarter: 2024Q3

REPORT INFORMATION
  Report Type: Spontaneous
  Country: SG (occurrence: SG)
  Receive Date: 20240819
  Receipt Date: 20240819
  Transmission Date: 20241017
  Serious: Yes (Other)
  Sender: ROCHE
  Company Number: SG-ROCHE-10000054939

PATIENT
  Age: 56 Year
  Sex: Male

DRUGS (1)
  1. RITUXIMAB [Suspect]
     Active Substance: RITUXIMAB
     Indication: Product used for unknown indication
     Route: 065

REACTIONS (4)
  - Confusional state [Unknown]
  - Hyperhidrosis [Unknown]
  - Hypotension [Unknown]
  - Swollen tongue [Unknown]

NARRATIVE: CASE EVENT DATE: 20240529
